FAERS Safety Report 19380647 (Version 1)
Quarter: 2021Q2

REPORT INFORMATION
  Report Type: Spontaneous
  Country: US (occurrence: US)
  Receive Date: 20210607
  Receipt Date: 20210607
  Transmission Date: 20210717
  Serious: No
  Sender: FDA-Public Use
  Company Number: US-BAUSCH-BL-2021-016525

PATIENT
  Age: 73 Year
  Sex: Female
  Weight: 58.11 kg

DRUGS (2)
  1. EYE ITCH RELIEF [Suspect]
     Active Substance: KETOTIFEN FUMARATE
     Indication: HYPERSENSITIVITY
     Dosage: AS NEEDED
     Route: 031
     Dates: start: 2021, end: 2021
  2. EYE ITCH RELIEF [Suspect]
     Active Substance: KETOTIFEN FUMARATE
     Dosage: AS NEEDED
     Route: 031
     Dates: start: 20210504

REACTIONS (2)
  - Lacrimation increased [Unknown]
  - Eye irritation [Unknown]

NARRATIVE: CASE EVENT DATE: 2021
